FAERS Safety Report 6998276-X (Version None)
Quarter: 2010Q3

REPORT INFORMATION
  Report Type: 
  Country: None (occurrence: None)
  Receive Date: 20100920
  Receipt Date: 20100319
  Transmission Date: 20110219
  Serious: No
  Sender: FDA-Public Use
  Company Number: US-ASTRAZENECA-2010SE12196

PATIENT
  Sex: Male
  Weight: 84.8 kg

DRUGS (3)
  1. SEROQUEL [Suspect]
     Route: 048
  2. OTHER PSYCHIATRIC MEDICATIONS [Concomitant]
  3. HALDOL [Concomitant]
     Indication: MENTAL DISORDER

REACTIONS (1)
  - DIABETES MELLITUS [None]
